FAERS Safety Report 13457189 (Version 1)
Quarter: 2017Q2

REPORT INFORMATION
  Report Type: Spontaneous
  Country: CZ (occurrence: CZ)
  Receive Date: 20170419
  Receipt Date: 20170419
  Transmission Date: 20170830
  Serious: Yes (Other)
  Sender: FDA-Public Use
  Company Number: CZ-SA-2017SA058825

PATIENT
  Age: 61 Year
  Sex: Female

DRUGS (6)
  1. TANAKAN [Concomitant]
     Active Substance: GINKGO
     Dosage: 1-0-0
     Route: 048
  2. PREDNISON [Concomitant]
     Active Substance: PREDNISONE
     Indication: MULTIPLE SCLEROSIS
     Dosage: 1-1-1
     Route: 048
  3. CLARITINE [Concomitant]
     Active Substance: LORATADINE
     Dosage: 1-0-0
     Route: 048
  4. BLESSIN PLUS H [Concomitant]
     Dosage: STRENGTH: 80/15 MG
     Route: 048
  5. AUBAGIO [Suspect]
     Active Substance: TERIFLUNOMIDE
     Indication: RELAPSING-REMITTING MULTIPLE SCLEROSIS
     Route: 048
     Dates: start: 20160816
  6. OMNIC TOCAS [Concomitant]
     Indication: URINARY TRACT DISORDER
     Route: 048

REACTIONS (11)
  - Cystitis noninfective [Not Recovered/Not Resolved]
  - Viral upper respiratory tract infection [Not Recovered/Not Resolved]
  - Pulpitis dental [Not Recovered/Not Resolved]
  - Arthralgia [Not Recovered/Not Resolved]
  - Arthralgia [Not Recovered/Not Resolved]
  - Dysaesthesia [Not Recovered/Not Resolved]
  - Dental caries [Not Recovered/Not Resolved]
  - Lower respiratory tract infection [Not Recovered/Not Resolved]
  - Skin burning sensation [Not Recovered/Not Resolved]
  - Urinary tract infection [Not Recovered/Not Resolved]
  - Cough [Not Recovered/Not Resolved]

NARRATIVE: CASE EVENT DATE: 201612
